FAERS Safety Report 7090734-5 (Version None)
Quarter: 2010Q4

REPORT INFORMATION
  Report Type: 
  Country: None (occurrence: None)
  Receive Date: 20101012
  Receipt Date: 20100721
  Transmission Date: 20110411
  Serious: No
  Sender: FDA-Public Use
  Company Number: US-001227

PATIENT
  Sex: Male
  Weight: 23.2 kg

DRUGS (3)
  1. KUVAN [Suspect]
     Indication: PHENYLKETONURIA
     Dosage: 500 MG QD ORAL, ORAL
     Route: 048
     Dates: start: 20060621, end: 20060628
  2. KUVAN [Suspect]
     Indication: PHENYLKETONURIA
     Dosage: 500 MG QD ORAL, ORAL
     Route: 048
     Dates: start: 20090117
  3. VYVANSE [Concomitant]

REACTIONS (1)
  - MOUTH BREATHING [None]
